FAERS Safety Report 10251858 (Version 1)
Quarter: 2014Q2

REPORT INFORMATION
  Report Type: Spontaneous
  Country: US (occurrence: None)
  Receive Date: 20140619
  Receipt Date: 20140619
  Transmission Date: 20141212
  Serious: Yes (Hospitalization)
  Sender: FDA-Public Use
  Company Number: UCM201406-000102

PATIENT
  Age: 92 Year
  Sex: Male

DRUGS (1)
  1. AMLODIPINE (AMLODIPINE) (AMLODIPINE) [Suspect]

REACTIONS (5)
  - Oedema peripheral [None]
  - Pneumonia [None]
  - Pleural effusion [None]
  - Respiratory failure [None]
  - Cardiac failure congestive [None]
